FAERS Safety Report 15121905 (Version 1)
Quarter: 2018Q3

REPORT INFORMATION
  Report Type: Spontaneous
  Country: US (occurrence: US)
  Receive Date: 20180613
  Receipt Date: 20180613
  Transmission Date: 20181010
  Serious: Yes (Hospitalization)
  Sender: FDA-Public Use
  Company Number: None

PATIENT
  Age: 66 Year
  Sex: Female
  Weight: 98.55 kg

DRUGS (18)
  1. ATORVASTATIN [Concomitant]
     Active Substance: ATORVASTATIN
  2. DESVENLAFAXINE. [Concomitant]
     Active Substance: DESVENLAFAXINE
  3. LASIX [Concomitant]
     Active Substance: FUROSEMIDE
  4. MARINOL [Concomitant]
     Active Substance: DRONABINOL
  5. NORCO [Concomitant]
     Active Substance: ACETAMINOPHEN\HYDROCODONE BITARTRATE
  6. ROBAXIN [Concomitant]
     Active Substance: METHOCARBAMOL
  7. XANAX [Concomitant]
     Active Substance: ALPRAZOLAM
  8. GLIPIZIDE. [Concomitant]
     Active Substance: GLIPIZIDE
  9. MORPHINE [Concomitant]
     Active Substance: MORPHINE
  10. ARIPIPRAZOLE. [Concomitant]
     Active Substance: ARIPIPRAZOLE
  11. ASPIRIN. [Concomitant]
     Active Substance: ASPIRIN
  12. COREG [Concomitant]
     Active Substance: CARVEDILOL
  13. PROTONIX [Concomitant]
     Active Substance: PANTOPRAZOLE SODIUM
  14. TAB?A?VITE [Concomitant]
  15. CAPECITABINE. [Suspect]
     Active Substance: CAPECITABINE
     Indication: BREAST CANCER
     Route: 048
     Dates: start: 20180110, end: 20180613
  16. NABUMETONE. [Concomitant]
     Active Substance: NABUMETONE
  17. PROMETHAZINE [Concomitant]
     Active Substance: PROMETHAZINE\PROMETHAZINE HYDROCHLORIDE
  18. ZOFRAN [Concomitant]
     Active Substance: ONDANSETRON HYDROCHLORIDE

REACTIONS (1)
  - Thrombosis [None]
